FAERS Safety Report 5129091-X (Version None)
Quarter: 2006Q4

REPORT INFORMATION
  Report Type: 
  Country: None (occurrence: None)
  Receive Date: 20061016
  Receipt Date: 20061016
  Transmission Date: 20070319
  Serious: Yes (Other)
  Sender: FDA-Public Use
  Company Number: None

PATIENT
  Sex: Female
  Weight: 92.9874 kg

DRUGS (11)
  1. PREDNISONE [Suspect]
     Indication: FIBROMYALGIA
     Dosage: 10 MG 1 PER DAY PO
     Route: 048
     Dates: start: 20060105, end: 20061013
  2. LISINOPRIL [Concomitant]
  3. NEURONTIN [Concomitant]
  4. LEVOXYL [Concomitant]
  5. PRILOSEC OTC [Concomitant]
  6. VERAPAMIL [Concomitant]
  7. ZETIA [Concomitant]
  8. FLAXSEED OIL CAPSULE [Concomitant]
  9. ALPRAZOLAM [Concomitant]
  10. BUDEPRION SR [Concomitant]
  11. GABAPENTIN [Concomitant]

REACTIONS (8)
  - ALOPECIA [None]
  - DRUG INEFFECTIVE [None]
  - HOSTILITY [None]
  - HUNGER [None]
  - INSOMNIA [None]
  - IRRITABILITY [None]
  - MOOD SWINGS [None]
  - WEIGHT INCREASED [None]
